FAERS Safety Report 9765606 (Version 1)
Quarter: 2013Q4

REPORT INFORMATION
  Report Type: Spontaneous
  Country: US (occurrence: US)
  Receive Date: 20131217
  Receipt Date: 20131217
  Transmission Date: 20140711
  Serious: No
  Sender: FDA-Public Use
  Company Number: US-GLAXOSMITHKLINE-A1008270A

PATIENT
  Age: 53 Year
  Sex: Male
  Weight: 86.4 kg

DRUGS (18)
  1. VOTRIENT [Suspect]
     Dosage: 800MG PER DAY
     Route: 048
  2. CELEBREX [Concomitant]
  3. COUMADIN [Concomitant]
  4. PROVENTIL HFA [Concomitant]
  5. LORAZEPAM [Concomitant]
  6. PROCHLOROPERAZINE [Concomitant]
  7. ADVAIR [Concomitant]
  8. IMITREX [Concomitant]
  9. RHINOCORT AQUA [Concomitant]
  10. GLIPIZIDE XL [Concomitant]
  11. FIORICET [Concomitant]
  12. SPIRIVA HANDIHALER [Concomitant]
  13. VERAPAMIL [Concomitant]
  14. CALCIUM [Concomitant]
  15. MULTIVITAMIN [Concomitant]
  16. CARISOPRODOL [Concomitant]
  17. MODAFINIL [Concomitant]
  18. ALOXI [Concomitant]

REACTIONS (1)
  - Blood pressure increased [Unknown]
